FAERS Safety Report 5527630-8 (Version None)
Quarter: 2007Q4

REPORT INFORMATION
  Report Type: 
  Country: None (occurrence: None)
  Receive Date: 20071126
  Receipt Date: 20071126
  Transmission Date: 20080405
  Serious: Yes (Hospitalization)
  Sender: FDA-Public Use
  Company Number: None

PATIENT
  Age: 71 Year
  Sex: Male
  Weight: 108.4097 kg

DRUGS (1)
  1. CARVEDIOL [Suspect]
     Indication: HYPERTENSION
     Dosage: 6.25MG BID PO
     Route: 048
     Dates: start: 20070905, end: 20071110

REACTIONS (2)
  - ANGINA PECTORIS [None]
  - THERAPEUTIC RESPONSE UNEXPECTED WITH DRUG SUBSTITUTION [None]
